FAERS Safety Report 15940479 (Version 3)
Quarter: 2019Q3

REPORT INFORMATION
  Report Type: Spontaneous
  Country: US (occurrence: US)
  Receive Date: 20190208
  Receipt Date: 20190705
  Transmission Date: 20191004
  Serious: Yes (Other)
  Sender: FDA-Public Use
  Company Number: US-BAUSCH-BL-2019-003724

PATIENT
  Age: 63 Year
  Sex: Female

DRUGS (1)
  1. XIFAXAN [Suspect]
     Active Substance: RIFAXIMIN
     Indication: HEPATIC ENCEPHALOPATHY
     Dosage: STARTED ALMOST 10 YEARS AGO
     Route: 065

REACTIONS (3)
  - Condition aggravated [Recovering/Resolving]
  - Visual impairment [Unknown]
  - Hepatic encephalopathy [Recovering/Resolving]
